FAERS Safety Report 11417334 (Version 2)
Quarter: 2015Q3

REPORT INFORMATION
  Report Type: Spontaneous
  Country: JP (occurrence: JP)
  Receive Date: 20150825
  Receipt Date: 20150825
  Transmission Date: 20151125
  Serious: Yes (Other)
  Sender: FDA-Public Use
  Company Number: JP-BAUSCH-BL-2015-019745

PATIENT
  Age: 78 Year
  Sex: Male

DRUGS (2)
  1. PEGAPTANIB [Suspect]
     Active Substance: PEGAPTANIB
     Indication: CATARACT
  2. PEGAPTANIB [Suspect]
     Active Substance: PEGAPTANIB
     Indication: NEOVASCULAR AGE-RELATED MACULAR DEGENERATION
     Route: 047
     Dates: end: 201101

REACTIONS (2)
  - Choroidal neovascularisation [Not Recovered/Not Resolved]
  - Macular hole [Recovered/Resolved]

NARRATIVE: CASE EVENT DATE: 201302
